FAERS Safety Report 14553459 (Version 1)
Quarter: 2018Q1

REPORT INFORMATION
  Report Type: Spontaneous
  Country: US (occurrence: US)
  Receive Date: 20180213
  Receipt Date: 20180213
  Transmission Date: 20180509
  Serious: Yes (Other)
  Sender: FDA-Public Use
  Company Number: None

PATIENT
  Age: 62 Year
  Sex: Male
  Weight: 99.79 kg

DRUGS (8)
  1. METOPROLOL TARTRATE 100MG [Suspect]
     Active Substance: METOPROLOL TARTRATE
     Indication: BLOOD PRESSURE MEASUREMENT
     Dates: start: 20170901, end: 20170921
  2. METOPROLOL TARTRATE 100MG [Suspect]
     Active Substance: METOPROLOL TARTRATE
     Indication: BLOOD CHOLESTEROL
     Dates: start: 20170901, end: 20170921
  3. CLOPIDOGREL BISULFATE 75MG TABLET [Suspect]
     Active Substance: CLOPIDOGREL BISULFATE
  4. IRBESARTAN 300MG TABLET [Suspect]
     Active Substance: IRBESARTAN
  5. AMLODIPINE BESYLATE 5MG [Suspect]
     Active Substance: AMLODIPINE BESYLATE
  6. METFORMIN HYDROCHLORIDE. [Suspect]
     Active Substance: METFORMIN HYDROCHLORIDE
  7. METOPROLOL TARTRATE 100MG [Suspect]
     Active Substance: METOPROLOL TARTRATE
     Indication: ANTICOAGULANT THERAPY
     Dates: start: 20170901, end: 20170921
  8. PRAVASTATIN SODIUM. [Suspect]
     Active Substance: PRAVASTATIN SODIUM

REACTIONS (8)
  - Flatulence [None]
  - Pruritus [None]
  - Blood pressure increased [None]
  - Drug ineffective [None]
  - Dizziness [None]
  - Palpitations [None]
  - Laryngitis [None]
  - Product substitution issue [None]

NARRATIVE: CASE EVENT DATE: 20170901
